FAERS Safety Report 5399157-8 (Version None)
Quarter: 2007Q3

REPORT INFORMATION
  Report Type: 
  Country: None (occurrence: None)
  Receive Date: 20070727
  Receipt Date: 20070719
  Transmission Date: 20080115
  Serious: Yes (Other)
  Sender: FDA-Public Use
  Company Number: US-ELI_LILLY_AND_COMPANY-US200704005282

PATIENT
  Age: 61 Year
  Sex: Male

DRUGS (6)
  1. GLIPIZIDE [Concomitant]
     Indication: TYPE 2 DIABETES MELLITUS
     Dosage: 5 MG, UNK
     Dates: start: 20050425, end: 20070424
  2. BYETTA [Suspect]
     Indication: TYPE 2 DIABETES MELLITUS
     Dosage: 5 UG, 2/D
     Route: 058
     Dates: start: 20060413, end: 20061205
  3. BYETTA [Suspect]
     Dosage: 10 UG, 2/D
     Route: 058
     Dates: start: 20061205, end: 20070601
  4. GLUCOPHAGE [Concomitant]
     Indication: TYPE 2 DIABETES MELLITUS
     Dosage: 500 MG, UNKNOWN
     Route: 048
     Dates: start: 20050425
  5. LIPITOR [Concomitant]
     Dosage: UNK, UNKNOWN
     Route: 065
  6. CRESTOR [Concomitant]
     Indication: BLOOD CHOLESTEROL INCREASED
     Dosage: 10 MG, DAILY (1/D)
     Route: 048
     Dates: start: 20060916

REACTIONS (4)
  - ASTHENIA [None]
  - EYE ROLLING [None]
  - HYPOGLYCAEMIC COMA [None]
  - TREMOR [None]
